FAERS Safety Report 4358720-3 (Version None)
Quarter: 2004Q2

REPORT INFORMATION
  Report Type: 
  Country: None (occurrence: None)
  Receive Date: 20040511
  Receipt Date: 20040427
  Transmission Date: 20050107
  Serious: Yes (Other)
  Sender: FDA-Public Use
  Company Number: 2004028382

PATIENT
  Age: 15 Year
  Sex: Female
  Weight: 54.4316 kg

DRUGS (2)
  1. BENADRYL [Suspect]
     Indication: PRURITUS GENERALISED
     Dosage: 15 ML, ONCE, ORAL
     Route: 048
     Dates: start: 20040418, end: 20040418
  2. POLYSPORIN TRIPLE ANTIBIOTIC (BACITRACIN ZINC, GRAMICIDIN, POLYMYXIN B [Suspect]
     Indication: WOUND
     Dosage: 1/3 OF A TUBE, ONCE, TOPICAL
     Route: 061
     Dates: start: 20040418, end: 20040418

REACTIONS (6)
  - APPLICATION SITE URTICARIA [None]
  - EYE REDNESS [None]
  - PRURITUS GENERALISED [None]
  - THROAT TIGHTNESS [None]
  - URTICARIA [None]
  - WHEEZING [None]
